FAERS Safety Report 8865528 (Version 1)
Quarter: 2012Q4

REPORT INFORMATION
  Report Type: 
  Country: US (occurrence: US)
  Receive Date: 20121024
  Receipt Date: 20121024
  Transmission Date: 20130627
  Serious: No
  Sender: FDA-Public Use
  Company Number: US-AMGEN-USASP2012003297

PATIENT
  Age: 62 Year
  Sex: Female
  Weight: 60.77 kg

DRUGS (5)
  1. ENBREL [Suspect]
     Indication: PRODUCT USED FOR UNKNOWN INDICATION
     Dosage: 50 mg, qwk
     Route: 058
  2. LOVASTATIN [Concomitant]
     Dosage: 10 mg, UNK
  3. ZOLOFT [Concomitant]
     Dosage: 25 mg, UNK
  4. CALCIUM + VIT D [Concomitant]
  5. MULTIVITAMIN [Concomitant]

REACTIONS (4)
  - Sneezing [Unknown]
  - Cough [Unknown]
  - Nasal congestion [Unknown]
  - Injection site erythema [Unknown]
